FAERS Safety Report 15891045 (Version 4)
Quarter: 2019Q1

REPORT INFORMATION
  Report Type: Report from Study
  Country: US (occurrence: US)
  Receive Date: 20190130
  Receipt Date: 20190306
  Transmission Date: 20190417
  Serious: Yes (Hospitalization, Other)
  Sender: FDA-Public Use
  Company Number: US-GILEAD-2019-0386590

PATIENT
  Age: 81 Year
  Sex: Female

DRUGS (17)
  1. IRON [Concomitant]
     Active Substance: IRON
     Dosage: NOT PROVIDED, 1 TABLET BY MOUTH DAILY AS NEEDED
     Dates: end: 20190116
  2. GABAPENTIN. [Concomitant]
     Active Substance: GABAPENTIN
     Dosage: 100MG DAILY BY MOUTH
     Dates: end: 201811
  3. DILTIAZEM [DILTIAZEM HYDROCHLORIDE] [Suspect]
     Active Substance: DILTIAZEM HYDROCHLORIDE
     Indication: CARDIAC DISORDER
     Dosage: UNK
     Route: 065
  4. VITAMIN D [Suspect]
     Active Substance: CHOLECALCIFEROL
     Indication: VITAMIN D DEFICIENCY
     Dosage: NOT PROVIDED, 1 TABLET BY MOUTH DAILY
     Route: 048
  5. METOPROLOL SUCCINATE. [Suspect]
     Active Substance: METOPROLOL SUCCINATE
     Indication: CARDIAC DISORDER
     Dosage: 50MG BY MOUTH EVERY DAY.
     Route: 065
  6. ALLOPURINOL. [Concomitant]
     Active Substance: ALLOPURINOL
     Dosage: 100MG TABLETS BY MOUTH TWICE DAILY
     Dates: start: 201811
  7. PIOGLITAZONE HYDROCHLORIDE. [Concomitant]
     Active Substance: PIOGLITAZONE HYDROCHLORIDE
     Dosage: 15MG BY MOUTH DAILY.
     Dates: start: 201901
  8. IDELALISIB [Suspect]
     Active Substance: IDELALISIB
     Dosage: 100 MG, 1/2 TABLET TWICE DAILY
     Route: 048
     Dates: start: 20190102
  9. IDELALISIB [Suspect]
     Active Substance: IDELALISIB
     Dosage: 100 MG, BID
     Route: 048
     Dates: start: 20190124
  10. GLIMEPIRIDE. [Concomitant]
     Active Substance: GLIMEPIRIDE
     Dosage: 2MG BY MOUTH TWICE DAILY.
  11. IDELALISIB [Suspect]
     Active Substance: IDELALISIB
     Dosage: 100MG, 1/2 TABLET EVERY MORNING AND 100MG, 1 TABLET BY MOUTH EVERY EVENING
     Route: 048
     Dates: start: 20190116
  12. ISOSORBIDE. [Suspect]
     Active Substance: ISOSORBIDE
     Indication: CARDIAC DISORDER
     Dosage: 60MG BY MOUTH DAILY
     Route: 065
     Dates: start: 201811
  13. FISH OIL [Concomitant]
     Active Substance: FISH OIL
     Dosage: NOT PROVIDED, CAPSULE BY MOUTH EVERY SO OFTEN
     Dates: end: 20181229
  14. IDELALISIB [Suspect]
     Active Substance: IDELALISIB
     Indication: NON-HODGKIN^S LYMPHOMA
     Dosage: 100 MG, BID
     Route: 048
     Dates: start: 20181120
  15. RANOLAZINE. [Suspect]
     Active Substance: RANOLAZINE
     Indication: CARDIAC DISORDER
     Dosage: 500 MG Q12H
     Route: 048
  16. PROAIR RESPICLICK [Concomitant]
     Active Substance: ALBUTEROL SULFATE
     Dosage: NOT PROVIDED, INHALER AS NEEDED
     Dates: start: 201811
  17. ALLOPURINOL. [Concomitant]
     Active Substance: ALLOPURINOL
     Dosage: 100MG, 2 TABLETS EVERY DAY.

REACTIONS (23)
  - Malaise [Recovering/Resolving]
  - White blood cell count increased [Not Recovered/Not Resolved]
  - Drug interaction [Unknown]
  - Blood glucose fluctuation [Not Recovered/Not Resolved]
  - Vitamin D deficiency [Not Recovered/Not Resolved]
  - Red blood cell count abnormal [Recovering/Resolving]
  - Myocardial infarction [Unknown]
  - Pollakiuria [Not Recovered/Not Resolved]
  - Renal disorder [Not Recovered/Not Resolved]
  - Product dose omission [Not Recovered/Not Resolved]
  - Haemorrhage [Unknown]
  - Chest pain [Recovering/Resolving]
  - Wheezing [Unknown]
  - Dyspnoea [Unknown]
  - Malaise [Unknown]
  - Asthenia [Not Recovered/Not Resolved]
  - Back pain [Recovering/Resolving]
  - Gastrooesophageal reflux disease [Recovering/Resolving]
  - Inappropriate schedule of product administration [Not Recovered/Not Resolved]
  - Myocardial infarction [Unknown]
  - Oropharyngeal pain [Recovering/Resolving]
  - Blood glucose increased [Unknown]
  - Off label use [Recovered/Resolved]

NARRATIVE: CASE EVENT DATE: 20181120
